FAERS Safety Report 19132646 (Version 1)
Quarter: 2021Q2

REPORT INFORMATION
  Report Type: Other
  Country: US (occurrence: US)
  Receive Date: 20210413
  Receipt Date: 20210413
  Transmission Date: 20210717
  Serious: Yes (Disabling)
  Sender: FDA-Public Use
  Company Number: US-C B FLEET CO INC-202104-US-001296

PATIENT
  Sex: Female

DRUGS (1)
  1. FLEET MINERAL OIL [Suspect]
     Active Substance: MINERAL OIL
     Indication: PRODUCT USED FOR UNKNOWN INDICATION
     Route: 054
     Dates: start: 20200824, end: 20200824

REACTIONS (3)
  - Lower limb fracture [Unknown]
  - Product used for unknown indication [None]
  - Fall [Recovered/Resolved]
